FAERS Safety Report 11533517 (Version 1)
Quarter: 2015Q3

REPORT INFORMATION
  Report Type: Spontaneous
  Country: None (occurrence: US)
  Receive Date: 20150921
  Receipt Date: 20150921
  Transmission Date: 20151125
  Serious: No
  Sender: FDA-Public Use
  Company Number: US-SIGMA-TAU US-2014STPI000486

PATIENT
  Age: 33 Year
  Sex: Male

DRUGS (1)
  1. MATULANE [Suspect]
     Active Substance: PROCARBAZINE HYDROCHLORIDE
     Indication: HODGKIN^S DISEASE
     Dosage: 50 MG, OTHER
     Route: 048
     Dates: start: 20140909

REACTIONS (5)
  - Hallucination [Recovered/Resolved]
  - Nervousness [Unknown]
  - Nightmare [None]
  - Depression [Unknown]
  - Agitation [Unknown]

NARRATIVE: CASE EVENT DATE: 20140909
